FAERS Safety Report 11778882 (Version 2)
Quarter: 2015Q4

REPORT INFORMATION
  Report Type: Report from Study
  Country: US (occurrence: US)
  Receive Date: 20151125
  Receipt Date: 20151203
  Transmission Date: 20160304
  Serious: No
  Sender: FDA-Public Use
  Company Number: US-ALEXION-A201504589

PATIENT
  Age: 3 Year
  Sex: Female

DRUGS (1)
  1. STRENSIQ [Suspect]
     Active Substance: ASFOTASE ALFA
     Indication: HYPOPHOSPHATASIA
     Dosage: 40 MG, Q3W
     Route: 058
     Dates: start: 20151114

REACTIONS (3)
  - Screaming [Unknown]
  - Needle issue [Unknown]
  - Petechiae [Unknown]

NARRATIVE: CASE EVENT DATE: 201511
